FAERS Safety Report 8564753-3 (Version None)
Quarter: 2012Q3

REPORT INFORMATION
  Report Type: 
  Country: None (occurrence: None)
  Receive Date: 20120803
  Receipt Date: 20120723
  Transmission Date: 20120928
  Serious: Yes (Other)
  Sender: FDA-Public Use
  Company Number: US-009507513-1207USA010956

PATIENT

DRUGS (13)
  1. ALLOPURINOL [Suspect]
  2. LABETALOL HYDROCHLORIDE [Concomitant]
  3. INSULIN [Concomitant]
  4. ZOCOR [Suspect]
     Route: 048
  5. METOLAZONE [Concomitant]
  6. PANTOPRAZOLE [Concomitant]
  7. ERGOCALCIFEROL [Concomitant]
  8. POTASSIUM CHLORIDE [Concomitant]
  9. CLONIDINE [Concomitant]
  10. DARBEPOETIN ALFA [Concomitant]
  11. ENOXAPARIN SODIUM [Concomitant]
  12. ONDANSETRON [Concomitant]
  13. PREDNISONE [Concomitant]

REACTIONS (8)
  - GASTROINTESTINAL HAEMORRHAGE [None]
  - DECREASED APPETITE [None]
  - NAUSEA [None]
  - CARDIAC ARREST [None]
  - FOCAL SEGMENTAL GLOMERULOSCLEROSIS [None]
  - JAUNDICE [None]
  - CHOLESTASIS [None]
  - DRUG-INDUCED LIVER INJURY [None]
